FAERS Safety Report 22337635 (Version 1)
Quarter: 2023Q2

REPORT INFORMATION
  Report Type: Report from Study
  Country: ES (occurrence: ES)
  Receive Date: 20230518
  Receipt Date: 20230518
  Transmission Date: 20230722
  Serious: Yes (Hospitalization)
  Sender: FDA-Public Use
  Company Number: ES-JNJFOC-20191201105

PATIENT
  Age: 17 Year
  Sex: Female
  Weight: 72.4 kg

DRUGS (11)
  1. PLACEBO [Suspect]
     Active Substance: UNSPECIFIED INGREDIENT
     Indication: Major depression
     Dates: start: 20191004, end: 20191028
  2. PLACEBO [Suspect]
     Active Substance: UNSPECIFIED INGREDIENT
     Indication: Suicidal ideation
  3. MIDAZOLAM [Suspect]
     Active Substance: MIDAZOLAM
     Indication: Suicidal ideation
     Route: 048
     Dates: start: 20191004, end: 20191028
  4. MIDAZOLAM [Suspect]
     Active Substance: MIDAZOLAM
     Indication: Major depression
  5. ESCITALOPRAM [Concomitant]
     Active Substance: ESCITALOPRAM OXALATE
     Indication: Major depression
     Route: 048
     Dates: start: 20191007, end: 20191128
  6. ESCITALOPRAM [Concomitant]
     Active Substance: ESCITALOPRAM OXALATE
     Indication: Suicidal ideation
  7. LORAZEPAM [Concomitant]
     Active Substance: LORAZEPAM
     Indication: Major depression
     Route: 048
     Dates: start: 20191009, end: 20191201
  8. LORAZEPAM [Concomitant]
     Active Substance: LORAZEPAM
     Indication: Suicidal ideation
  9. ZOLPIDEM [Concomitant]
     Active Substance: ZOLPIDEM TARTRATE
     Indication: Major depression
     Route: 048
     Dates: start: 20191007, end: 20191128
  10. ZOLPIDEM [Concomitant]
     Active Substance: ZOLPIDEM TARTRATE
     Indication: Suicidal ideation
  11. DIENOGEST\ETHINYL ESTRADIOL [Concomitant]
     Active Substance: DIENOGEST\ETHINYL ESTRADIOL
     Indication: Contraception
     Dosage: DIENOGEST/ETHINILESTRADIOL 2MG/0.03MG
     Route: 048
     Dates: start: 20190531

REACTIONS (1)
  - Suicide attempt [Recovered/Resolved]

NARRATIVE: CASE EVENT DATE: 20191126
